FAERS Safety Report 17520371 (Version 1)
Quarter: 2020Q1

REPORT INFORMATION
  Report Type: Spontaneous
  Country: US (occurrence: US)
  Receive Date: 20200228
  Receipt Date: 20200228
  Transmission Date: 20200409
  Serious: No
  Sender: FDA-Public Use
  Company Number: None

PATIENT
  Age: 32 Year
  Sex: Male
  Weight: 81.65 kg

DRUGS (1)
  1. IPAMORELINNASAL SPRAY [Suspect]
     Active Substance: IPAMORELIN
     Indication: SINUS HEADACHE
     Dates: start: 20200111, end: 20200128

REACTIONS (3)
  - Lacrimation increased [None]
  - Headache [None]
  - Product quality issue [None]

NARRATIVE: CASE EVENT DATE: 20200123
